FAERS Safety Report 5213757-7 (Version None)
Quarter: 2007Q1

REPORT INFORMATION
  Report Type: 
  Country: None (occurrence: None)
  Receive Date: 20070119
  Receipt Date: 20070109
  Transmission Date: 20070707
  Serious: Yes (Hospitalization)
  Sender: FDA-Public Use
  Company Number: JP-PFIZER INC-2006154010

PATIENT
  Age: 37 Year
  Sex: Male

DRUGS (4)
  1. ATARAX [Suspect]
     Route: 048
     Dates: start: 20061122, end: 20061127
  2. GASTER [Concomitant]
  3. DOMPERIDONE [Concomitant]
     Route: 048
  4. MUCOSTA [Concomitant]
     Route: 048

REACTIONS (1)
  - JAUNDICE [None]
